FAERS Safety Report 10396774 (Version 1)
Quarter: 2014Q3

REPORT INFORMATION
  Report Type: Spontaneous
  Country: None (occurrence: None)
  Receive Date: 20140818
  Receipt Date: 20140818
  Transmission Date: 20150326
  Serious: Yes (Hospitalization, Other)
  Sender: FDA-Public Use
  Company Number: KAD201408-000928

PATIENT
  Age: 15 Year
  Sex: Female

DRUGS (2)
  1. RIBAVIRIN. [Suspect]
     Active Substance: RIBAVIRIN
     Indication: NEUROLOGICAL INFECTION
     Dosage: 3 X 2 THERAPY  - STOPPED THERAPY
  2. ISOPRINOSINE [Suspect]
     Active Substance: INOSINE PRANOBEX
     Indication: NEUROLOGICAL INFECTION
     Dosage: 100 MG/KG/DAY( 1000 MG THRICE DAILY)

REACTIONS (10)
  - Affect lability [None]
  - Abnormal behaviour [None]
  - Macular pigmentation [None]
  - Necrotising retinitis [None]
  - Optic atrophy [None]
  - Off label use [None]
  - Retinal degeneration [None]
  - Gastrointestinal disorder [None]
  - Subacute sclerosing panencephalitis [None]
  - Corneal neovascularisation [None]
